FAERS Safety Report 8138881-0 (Version None)
Quarter: 2012Q1

REPORT INFORMATION
  Report Type: 
  Country: None (occurrence: None)
  Receive Date: 20120215
  Receipt Date: 20120214
  Transmission Date: 20120608
  Serious: Yes (Hospitalization)
  Sender: FDA-Public Use
  Company Number: FR-BAYER-2012-014912

PATIENT
  Age: 32 Year
  Sex: Female
  Weight: 69 kg

DRUGS (3)
  1. OXYTOCIN [Concomitant]
     Dosage: UNK
  2. CLONAZEPAM [Concomitant]
     Dosage: 5 DF, QD
     Route: 048
     Dates: start: 20090101
  3. INTERFERON BETA-1B [Suspect]

REACTIONS (3)
  - MATERNAL EXPOSURE DURING PREGNANCY [None]
  - RETROPLACENTAL HAEMATOMA [None]
  - PREGNANCY [None]
